FAERS Safety Report 4334582-5 (Version None)
Quarter: 2004Q2

REPORT INFORMATION
  Report Type: 
  Country: None (occurrence: None)
  Receive Date: 20040407
  Receipt Date: 20040326
  Transmission Date: 20050107
  Serious: Yes (Other)
  Sender: FDA-Public Use
  Company Number: GB-BRISTOL-MYERS SQUIBB COMPANY-12542718

PATIENT
  Sex: Female

DRUGS (2)
  1. TRIAMCINOLONE [Suspect]
     Indication: HAEMANGIOMA
     Route: 042
  2. BETAMETHASONE [Suspect]
     Indication: HAEMANGIOMA
     Route: 042

REACTIONS (3)
  - ADRENAL SUPPRESSION [None]
  - FAILURE TO THRIVE [None]
  - MUSCLE ATROPHY [None]
